FAERS Safety Report 7436888-X (Version None)
Quarter: 2011Q2

REPORT INFORMATION
  Report Type: 
  Country: None (occurrence: None)
  Receive Date: 20110426
  Receipt Date: 20101213
  Transmission Date: 20111010
  Serious: Yes (Hospitalization)
  Sender: FDA-Public Use
  Company Number: US-BAYER-201026580NA

PATIENT
  Age: 28 Year
  Sex: Female
  Weight: 90.909 kg

DRUGS (5)
  1. PROMETHAZINE [Concomitant]
     Dates: start: 20070312
  2. LORTAB [Concomitant]
     Indication: PAIN
  3. YASMIN [Suspect]
     Indication: ORAL CONTRACEPTION
     Route: 048
     Dates: start: 20070101, end: 20070401
  4. HYDROCODONE BITARTRATE AND ACETAMINOPHEN [Concomitant]
     Dosage: 5-500 TAB
     Dates: start: 20070312
  5. NITROFURANTOIN [Concomitant]
     Dates: start: 20070312

REACTIONS (1)
  - THROMBOSIS [None]
